FAERS Safety Report 7790181-4 (Version None)
Quarter: 2011Q3

REPORT INFORMATION
  Report Type: 
  Country: None (occurrence: None)
  Receive Date: 20110930
  Receipt Date: 20100928
  Transmission Date: 20111222
  Serious: Yes (Other)
  Sender: FDA-Public Use
  Company Number: US-ASTRAZENECA-2009UW05057

PATIENT
  Age: 72 Year
  Sex: Female
  Weight: 56.7 kg

DRUGS (2)
  1. ARIMIDEX [Suspect]
     Indication: BREAST CANCER
     Route: 048
     Dates: start: 20090101
  2. ANASTROZOLE [Suspect]
     Indication: BREAST CANCER
     Route: 048
     Dates: start: 20100801

REACTIONS (9)
  - NAUSEA [None]
  - FEMUR FRACTURE [None]
  - WEIGHT INCREASED [None]
  - DEPRESSION [None]
  - NIGHT SWEATS [None]
  - SLEEP DISORDER [None]
  - FATIGUE [None]
  - INSOMNIA [None]
  - HOT FLUSH [None]
